FAERS Safety Report 17447852 (Version 2)
Quarter: 2020Q1

REPORT INFORMATION
  Report Type: Report from Study
  Country: None (occurrence: US)
  Receive Date: 20200221
  Receipt Date: 20200327
  Transmission Date: 20200409
  Serious: Yes (Death, Other)
  Sender: FDA-Public Use
  Company Number: US-ABBVIE-20K-163-3284452-00

PATIENT
  Age: 75 Year
  Sex: Male
  Weight: 88.53 kg

DRUGS (8)
  1. CHLORHEXIDINE GLUCONATE. [Concomitant]
     Active Substance: CHLORHEXIDINE GLUCONATE
     Indication: STOMATITIS
     Dosage: SOLUTION (RINSE)
     Route: 048
  2. ONDANSETRON [Concomitant]
     Active Substance: ONDANSETRON
     Indication: NAUSEA
     Route: 048
  3. PRILOSEC [Concomitant]
     Active Substance: OMEPRAZOLE MAGNESIUM
     Indication: PRODUCT USED FOR UNKNOWN INDICATION
  4. FLUTICASONE PROPIONATE. [Concomitant]
     Active Substance: FLUTICASONE PROPIONATE
     Indication: HYPERSENSITIVITY
     Route: 045
  5. ALECENSA [Suspect]
     Active Substance: ALECTINIB HYDROCHLORIDE
     Indication: LUNG NEOPLASM MALIGNANT
     Dosage: DAILY 4 CAPSULES TWICE DAILY
     Route: 048
     Dates: start: 201907, end: 20191229
  6. CLOTRIMAZOLE W/DEXAMETHASONE ACETATE [Concomitant]
     Indication: ERYTHEMA
     Dosage: CREAM
     Route: 062
  7. VENCLEXTA [Suspect]
     Active Substance: VENETOCLAX
     Indication: ACUTE MYELOID LEUKAEMIA
     Route: 048
     Dates: start: 2019
  8. TRAMADOL. [Concomitant]
     Active Substance: TRAMADOL
     Indication: PAIN
     Route: 048

REACTIONS (11)
  - Hypersensitivity [Unknown]
  - Stomatitis [Unknown]
  - Nausea [Unknown]
  - Procedural pain [Unknown]
  - White blood cell count decreased [Unknown]
  - Sepsis [Fatal]
  - Platelet disorder [Unknown]
  - Bone marrow transplant [Unknown]
  - Red blood cell count decreased [Unknown]
  - Blood blister [Unknown]
  - Erythema [Unknown]

NARRATIVE: CASE EVENT DATE: 20191226
